FAERS Safety Report 8963862 (Version 1)
Quarter: 2012Q4

REPORT INFORMATION
  Report Type: 
  Country: US (occurrence: US)
  Receive Date: 20121214
  Receipt Date: 20121214
  Transmission Date: 20130627
  Serious: Yes (Other)
  Sender: FDA-Public Use
  Company Number: US-PFIZER INC-2012313880

PATIENT
  Age: 47 Year
  Sex: Female
  Weight: 73.47 kg

DRUGS (3)
  1. LYRICA [Suspect]
     Indication: NERVE DAMAGE
     Dosage: 75 mg, 2x/day
     Route: 048
     Dates: start: 2007
  2. CIMETIDINE [Concomitant]
     Indication: IRRITABLE BOWEL SYNDROME
     Dosage: 40 mg, 2x/day
  3. LEVOTHYROXINE [Concomitant]
     Indication: HASHIMOTO^S DISEASE
     Dosage: 75 mg, 1x/day

REACTIONS (6)
  - Angioedema [Recovered/Resolved]
  - Pharyngeal oedema [Recovered/Resolved]
  - Lip swelling [Recovered/Resolved]
  - Rash [Recovered/Resolved]
  - Lip dry [Recovered/Resolved]
  - Chapped lips [Recovered/Resolved]
